FAERS Safety Report 21892966 (Version 1)
Quarter: 2023Q1

REPORT INFORMATION
  Report Type: Spontaneous
  Country: US (occurrence: US)
  Receive Date: 20230120
  Receipt Date: 20230120
  Transmission Date: 20230418
  Serious: No
  Sender: FDA-Public Use
  Company Number: US-BEH-2023154340

PATIENT
  Sex: Female
  Weight: 48.073 kg

DRUGS (2)
  1. HIZENTRA [Suspect]
     Active Substance: HUMAN IMMUNOGLOBULIN G
     Indication: Immunodeficiency common variable
     Dosage: 1 GRAM, BIW
     Route: 058
     Dates: start: 202208
  2. HIZENTRA [Suspect]
     Active Substance: HUMAN IMMUNOGLOBULIN G
     Dosage: 2 GRAM, BIW
     Route: 058
     Dates: start: 202208

REACTIONS (2)
  - Infection [Unknown]
  - Weight decreased [Unknown]
